FAERS Safety Report 8047344-2 (Version None)
Quarter: 2012Q1

REPORT INFORMATION
  Report Type: 
  Country: None (occurrence: None)
  Receive Date: 20120116
  Receipt Date: 20120110
  Transmission Date: 20120608
  Serious: Yes (Death, Life-Threatening, Hospitalization, Disabling)
  Sender: FDA-Public Use
  Company Number: US-GILEAD-2012-0048753

PATIENT
  Age: 68 Year
  Sex: Female

DRUGS (3)
  1. LETAIRIS [Suspect]
     Indication: PRODUCT USED FOR UNKNOWN INDICATION
     Dosage: 5 MG, UNK
     Route: 048
     Dates: start: 20080826
  2. ADCIRCA [Concomitant]
  3. REMODULIN [Concomitant]

REACTIONS (2)
  - DISEASE PROGRESSION [None]
  - RESPIRATORY FAILURE [None]
